FAERS Safety Report 8976103 (Version 4)
Quarter: 2013Q2

REPORT INFORMATION
  Report Type: Report from Study
  Country: US (occurrence: US)
  Receive Date: 20121220
  Receipt Date: 20130410
  Transmission Date: 20140414
  Serious: Yes (Hospitalization)
  Sender: FDA-Public Use
  Company Number: US-PFIZER INC-2012281679

PATIENT
  Age: 61 Year
  Sex: Female
  Weight: 84.4 kg

DRUGS (16)
  1. BLINDED CELECOXIB [Suspect]
     Indication: OSTEOARTHRITIS
     Dosage: UNK, 3X/DAY
     Route: 048
     Dates: start: 20110620
  2. BLINDED IBUPROFEN [Suspect]
     Indication: OSTEOARTHRITIS
     Dosage: UNK, 3X/DAY
     Route: 048
     Dates: start: 20110620
  3. BLINDED IBUPROFEN [Suspect]
     Indication: OSTEOARTHRITIS
     Dosage: UNK, 3X/DAY
     Route: 048
     Dates: start: 20110620
  4. BLINDED IBUPROFEN [Suspect]
     Indication: OSTEOARTHRITIS
     Dosage: UNK, 3X/DAY
     Route: 048
     Dates: start: 20110620
  5. BLINDED NAPROXEN [Suspect]
     Indication: OSTEOARTHRITIS
     Dosage: UNK, 3X/DAY
     Route: 048
     Dates: start: 20110620
  6. BLINDED NAPROXEN [Suspect]
     Indication: OSTEOARTHRITIS
     Dosage: UNK, 3X/DAY
     Route: 048
     Dates: start: 20110620
  7. BLINDED NAPROXEN [Suspect]
     Indication: OSTEOARTHRITIS
     Dosage: UNK, 3X/DAY
     Route: 048
     Dates: start: 20110620
  8. BLINDED PLACEBO [Suspect]
     Indication: OSTEOARTHRITIS
     Dosage: UNK, 3X/DAY
     Route: 048
     Dates: start: 20110620
  9. SULFASALAZINE [Suspect]
     Dosage: 1000 MG, 2X/DAY
     Route: 048
     Dates: start: 20120901, end: 20121109
  10. NEXIUM [Concomitant]
     Indication: PROPHYLAXIS
     Dosage: 40 MG, 1X/DAY
     Route: 048
     Dates: start: 20110620
  11. LISINOPRIL [Concomitant]
     Indication: HYPERTENSION
     Dosage: UNK
     Dates: start: 20120413
  12. LOSARTAN [Concomitant]
     Indication: HYPERTENSION
     Dosage: UNK
     Dates: start: 20120715
  13. FOSAMAX [Concomitant]
     Indication: OSTEOPENIA
     Dosage: UNK
     Dates: start: 20120801
  14. KRILL OIL OMEGA 3 [Concomitant]
     Indication: PROPHYLAXIS
     Dosage: UNK
     Dates: start: 20120901
  15. TYLENOL [Concomitant]
     Indication: OSTEOARTHRITIS
     Dosage: UNK
     Dates: start: 20110801
  16. CITRACAL + D [Concomitant]
     Indication: MINERAL SUPPLEMENTATION
     Dosage: UNK
     Dates: start: 20120801

REACTIONS (3)
  - Hypoxia [Recovered/Resolved]
  - Dyspnoea [Recovered/Resolved]
  - Chest pain [Recovered/Resolved]
